FAERS Safety Report 7684664-5 (Version None)
Quarter: 2011Q3

REPORT INFORMATION
  Report Type: 
  Country: None (occurrence: None)
  Receive Date: 20110805
  Receipt Date: 20110725
  Transmission Date: 20111222
  Serious: Yes (Other)
  Sender: FDA-Public Use
  Company Number: 2010024852

PATIENT
  Age: 38 Year
  Sex: Female
  Weight: 109.3 kg

DRUGS (40)
  1. HIZENTRA [Suspect]
  2. HIZENTRA [Suspect]
  3. LASIX [Concomitant]
  4. CHOLESTYRAMINE (COLESTYRAMINE) [Concomitant]
  5. ASPIRIN [Concomitant]
  6. HIZENTRA [Suspect]
  7. DUONEB [Concomitant]
  8. PREVACID [Concomitant]
  9. ERYTHROMYCIN [Concomitant]
  10. CIPRO [Concomitant]
  11. HIZENTRA [Suspect]
     Indication: IMMUNODEFICIENCY COMMON VARIABLE
     Dosage: 7G DAILY (35 ML) OVER 1 TO 1.5 HOURS VIA 3 SITES SUBCUTANEOUS, 5, 10, 20  ML VIALS,
     Route: 058
     Dates: start: 20110724
  12. HIZENTRA [Suspect]
     Indication: IMMUNODEFICIENCY COMMON VARIABLE
     Dosage: 7G DAILY (35 ML) OVER 1 TO 1.5 HOURS VIA 3 SITES SUBCUTANEOUS, 5, 10, 20  ML VIALS,
     Route: 058
     Dates: start: 20110603
  13. HIZENTRA [Suspect]
     Indication: IMMUNODEFICIENCY COMMON VARIABLE
     Dosage: 7G DAILY (35 ML) OVER 1 TO 1.5 HOURS VIA 3 SITES SUBCUTANEOUS, 5, 10, 20  ML VIALS,
     Route: 058
     Dates: start: 20100526
  14. HIZENTRA [Suspect]
     Indication: IMMUNODEFICIENCY COMMON VARIABLE
     Dosage: 7G DAILY (35 ML) OVER 1 TO 1.5 HOURS VIA 3 SITES SUBCUTANEOUS, 5, 10, 20  ML VIALS,
     Route: 058
     Dates: start: 20110425
  15. HIZENTRA [Suspect]
  16. SEROQUEL [Concomitant]
  17. ALLEGRA [Concomitant]
  18. PULMICORT [Concomitant]
  19. HIZENTRA [Suspect]
  20. OXYCODONE-APAP (OXYCIDIBE/APAP) [Concomitant]
  21. ATIVAN [Concomitant]
  22. HIZENTRA [Suspect]
  23. HIZENTRA [Suspect]
  24. HIZENTRA [Suspect]
  25. CARDIZEM [Concomitant]
  26. NORCO [Concomitant]
  27. TOBI [Concomitant]
  28. HIZENTRA [Suspect]
  29. GLYBURIDE [Concomitant]
  30. PHENERGAN [Concomitant]
  31. RISPERDAL [Concomitant]
  32. LUVOX [Concomitant]
  33. HIZENTRA [Suspect]
  34. TOPAMAX [Concomitant]
  35. METHOCARBAMOL [Concomitant]
  36. ERYTHROMYCIN [Concomitant]
  37. VITAMIN B12 [Concomitant]
  38. HIZENTRA [Suspect]
  39. EFFEXOR XR [Concomitant]
  40. METFORMIN HCL (METFORMIN HYDROCHLORIDE) [Concomitant]

REACTIONS (12)
  - PROTEUS INFECTION [None]
  - FATIGUE [None]
  - PSEUDOMONAS INFECTION [None]
  - VOMITING [None]
  - MIGRAINE [None]
  - INFUSION SITE WARMTH [None]
  - MENINGITIS ASEPTIC [None]
  - ARTHRALGIA [None]
  - LIP BLISTER [None]
  - INFUSION SITE PAIN [None]
  - INFUSION SITE ERYTHEMA [None]
  - UPPER RESPIRATORY TRACT INFECTION [None]
